FAERS Safety Report 16627815 (Version 1)
Quarter: 2019Q3

REPORT INFORMATION
  Report Type: Spontaneous
  Country: US (occurrence: US)
  Receive Date: 20190724
  Receipt Date: 20190724
  Transmission Date: 20191004
  Serious: No
  Sender: FDA-Public Use
  Company Number: US-JNJFOC-20190703728

PATIENT
  Sex: Female
  Weight: 81.72 kg

DRUGS (1)
  1. INVEGA TRINZA [Suspect]
     Active Substance: PALIPERIDONE PALMITATE
     Indication: PRODUCT USED FOR UNKNOWN INDICATION
     Route: 030
     Dates: start: 20190616

REACTIONS (3)
  - Skin disorder [Unknown]
  - Urticaria [Unknown]
  - Varicella [Unknown]

NARRATIVE: CASE EVENT DATE: 20190617
